FAERS Safety Report 8846511 (Version 3)
Quarter: 2013Q2

REPORT INFORMATION
  Report Type: Report from Study
  Country: GB (occurrence: GB)
  Receive Date: 20121017
  Receipt Date: 20130506
  Transmission Date: 20140414
  Serious: Yes (Death, Hospitalization, Other)
  Sender: FDA-Public Use
  Company Number: GB-ROCHE-1145544

PATIENT
  Sex: Female
  Weight: 87 kg

DRUGS (19)
  1. RITUXIMAB [Suspect]
     Indication: RHEUMATOID ARTHRITIS
     Route: 065
     Dates: start: 20110831
  2. METHOTREXATE [Concomitant]
     Route: 065
     Dates: start: 20110722
  3. FOLIC ACID [Concomitant]
     Route: 048
  4. BUPRENORPHINE [Concomitant]
     Dosage: 5 MICROGRAMMES PER HOUR, TOTAL QUANTITY 4 PATCHES
     Route: 061
  5. ADCAL [Concomitant]
     Dosage: 2 TABLETS
     Route: 048
  6. BISOPROLOL [Concomitant]
     Route: 048
  7. HYDROXYCHLOROQUINE [Concomitant]
     Indication: RHEUMATOID ARTHRITIS
     Route: 048
  8. PREDNISOLONE [Concomitant]
     Route: 048
     Dates: end: 20120810
  9. BUMETANIDE [Concomitant]
     Route: 048
  10. LANSOPRAZOLE [Concomitant]
     Route: 048
  11. PARACETAMOL [Concomitant]
     Route: 048
  12. ANASTROZOLE [Concomitant]
     Route: 048
  13. CYCLIZINE [Concomitant]
     Indication: NAUSEA
     Route: 048
  14. FERROUS SULFATE [Concomitant]
     Route: 048
  15. SODIUM CHLORIDE [Concomitant]
     Dosage: 2 CAPULES
     Route: 048
  16. ONDANSETRON [Concomitant]
     Indication: NAUSEA
     Route: 048
  17. OSELTAMIVIR [Concomitant]
     Route: 048
  18. DOMPERIDONE [Concomitant]
     Route: 048
  19. FORTISIP [Concomitant]
     Dosage: 1 CARTON
     Route: 048

REACTIONS (8)
  - Cardiac failure chronic [Fatal]
  - Aortic stenosis [Unknown]
  - Chronic obstructive pulmonary disease [Unknown]
  - Pneumonia [Unknown]
  - Dyspnoea [Unknown]
  - Goitre [Unknown]
  - Pneumonia [Unknown]
  - Chest pain [Unknown]
